FAERS Safety Report 8050073-2 (Version None)
Quarter: 2012Q1

REPORT INFORMATION
  Report Type: 
  Country: None (occurrence: None)
  Receive Date: 20120117
  Receipt Date: 20120111
  Transmission Date: 20120608
  Serious: Yes (Other)
  Sender: FDA-Public Use
  Company Number: JP-PFIZER INC-2012007711

PATIENT
  Sex: Female

DRUGS (1)
  1. PREMARIN [Suspect]
     Dosage: UNK
     Dates: start: 19920101

REACTIONS (3)
  - MUSCLE TWITCHING [None]
  - MUSCLE SPASMS [None]
  - ALTERED STATE OF CONSCIOUSNESS [None]
